FAERS Safety Report 14354690 (Version 1)
Quarter: 2018Q1

REPORT INFORMATION
  Report Type: Spontaneous
  Country: US (occurrence: US)
  Receive Date: 20180104
  Receipt Date: 20180104
  Transmission Date: 20180509
  Serious: No
  Sender: FDA-Public Use
  Company Number: None

PATIENT
  Age: 69 Year
  Sex: Male
  Weight: 116 kg

DRUGS (1)
  1. TOBRAMYCIN 40MG/ML FRESENIUS KBI [Suspect]
     Active Substance: TOBRAMYCIN SULFATE
     Indication: CELLULITIS
     Route: 042
     Dates: start: 20171107

REACTIONS (1)
  - Tinnitus [None]

NARRATIVE: CASE EVENT DATE: 20171203
